FAERS Safety Report 5301317-9 (Version None)
Quarter: 2007Q2

REPORT INFORMATION
  Report Type: 
  Country: None (occurrence: None)
  Receive Date: 20070412
  Receipt Date: 20070327
  Transmission Date: 20071010
  Serious: Yes (Other)
  Sender: FDA-Public Use
  Company Number: 8022913

PATIENT
  Sex: Male

DRUGS (1)
  1. KEPPRA [Suspect]
     Dosage: 300 MG IV
     Route: 042

REACTIONS (2)
  - HYPERTENSIVE CRISIS [None]
  - WRONG TECHNIQUE IN DRUG USAGE PROCESS [None]
